FAERS Safety Report 9580935 (Version 1)
Quarter: 2013Q4

REPORT INFORMATION
  Report Type: Spontaneous
  Country: US (occurrence: None)
  Receive Date: 20131001
  Receipt Date: 20131001
  Transmission Date: 20140711
  Serious: No
  Sender: FDA-Public Use
  Company Number: None

PATIENT
  Age: 24 Year
  Sex: Female
  Weight: 84.82 kg

DRUGS (2)
  1. SERTRALINE [Suspect]
     Indication: POSTPARTUM DEPRESSION
     Dosage: 1 PILL ONCE DAILY TAKEN BY MOUTH
     Route: 048
     Dates: start: 20130927, end: 20130927
  2. SERTRALINE [Suspect]
     Indication: ANXIETY
     Dosage: 1 PILL ONCE DAILY TAKEN BY MOUTH
     Route: 048
     Dates: start: 20130927, end: 20130927

REACTIONS (14)
  - Mania [None]
  - Feeling abnormal [None]
  - Daydreaming [None]
  - Panic attack [None]
  - Tremor [None]
  - Middle insomnia [None]
  - Skin warm [None]
  - Skin tightness [None]
  - Formication [None]
  - Insomnia [None]
  - Hallucination, visual [None]
  - Restless legs syndrome [None]
  - Diarrhoea [None]
  - Nausea [None]
